FAERS Safety Report 20668059 (Version 2)
Quarter: 2022Q2

REPORT INFORMATION
  Report Type: Spontaneous
  Country: US (occurrence: None)
  Receive Date: 20220404
  Receipt Date: 20220408
  Transmission Date: 20220720
  Serious: Yes (Other)
  Sender: FDA-Public Use
  Company Number: US-ROCHE-3057924

PATIENT
  Age: 63 Year
  Sex: Female
  Weight: 56.5 kg

DRUGS (3)
  1. TECENTRIQ [Suspect]
     Active Substance: ATEZOLIZUMAB
     Indication: Non-small cell lung cancer
     Dosage: 30 MINUTE INFUSION ;ONGOING: YES?LAST INFUSION WAS GIVEN ON 14/MAR/2022.
     Route: 041
     Dates: start: 20210817
  2. NYSTATIN [Concomitant]
     Active Substance: NYSTATIN
     Indication: Oral candidiasis
     Dates: start: 20220303
  3. CABOZANTINIB [Concomitant]
     Active Substance: CABOZANTINIB
     Indication: Non-small cell lung cancer
     Route: 065
     Dates: start: 20210817

REACTIONS (11)
  - Lung neoplasm [Not Recovered/Not Resolved]
  - Oral candidiasis [Recovered/Resolved]
  - Weight decreased [Unknown]
  - Hiatus hernia [Not Recovered/Not Resolved]
  - Neoplasm [Recovering/Resolving]
  - Pleural neoplasm [Recovering/Resolving]
  - Feeding disorder [Unknown]
  - Tongue fungal infection [Recovering/Resolving]
  - Gastrointestinal bacterial infection [Unknown]
  - Drug ineffective [Unknown]
  - Mass [Unknown]

NARRATIVE: CASE EVENT DATE: 20211101
